FAERS Safety Report 4689563-9 (Version None)
Quarter: 2005Q2

REPORT INFORMATION
  Report Type: 
  Country: None (occurrence: None)
  Receive Date: 20050608
  Receipt Date: 20050330
  Transmission Date: 20051028
  Serious: No
  Sender: FDA-Public Use
  Company Number: 2005-BP-05192BP

PATIENT
  Sex: Female

DRUGS (1)
  1. SPIRIVA [Suspect]
     Dosage: NR (18 MCG), NR

REACTIONS (3)
  - DYSURIA [None]
  - POOR PERIPHERAL CIRCULATION [None]
  - SKIN CHAPPED [None]
